FAERS Safety Report 21974221 (Version 1)
Quarter: 2023Q1

REPORT INFORMATION
  Report Type: Spontaneous
  Country: US (occurrence: US)
  Receive Date: 20230209
  Receipt Date: 20230209
  Transmission Date: 20230417
  Serious: Yes (Hospitalization)
  Sender: FDA-Public Use
  Company Number: US-MYLANLABS-2023M1013837

PATIENT
  Age: 70 Year
  Sex: Female

DRUGS (8)
  1. FEXOFENADINE [Suspect]
     Active Substance: FEXOFENADINE HYDROCHLORIDE
     Indication: Urticaria chronic
     Dosage: UNK UNK, QD
     Route: 065
  2. FEXOFENADINE [Suspect]
     Active Substance: FEXOFENADINE HYDROCHLORIDE
     Indication: Angioedema
  3. FAMOTIDINE [Suspect]
     Active Substance: FAMOTIDINE
     Indication: Urticaria chronic
     Dosage: UNK, QD
     Route: 065
  4. FAMOTIDINE [Suspect]
     Active Substance: FAMOTIDINE
     Indication: Angioedema
  5. EPIPEN [Suspect]
     Active Substance: EPINEPHRINE
     Indication: Urticaria chronic
     Dosage: UNK UNK, PRN, AS NEEDED
     Route: 065
  6. EPIPEN [Suspect]
     Active Substance: EPINEPHRINE
     Indication: Angioedema
  7. CETIRIZINE [Suspect]
     Active Substance: CETIRIZINE HYDROCHLORIDE
     Indication: Urticaria chronic
     Dosage: UNK, QD
     Route: 065
  8. CETIRIZINE [Suspect]
     Active Substance: CETIRIZINE HYDROCHLORIDE
     Indication: Angioedema

REACTIONS (2)
  - Drug ineffective [Unknown]
  - Off label use [Unknown]
